FAERS Safety Report 6267570-2 (Version None)
Quarter: 2009Q3

REPORT INFORMATION
  Report Type: 
  Country: None (occurrence: None)
  Receive Date: 20090714
  Receipt Date: 20090710
  Transmission Date: 20100115
  Serious: Yes (Death, Hospitalization, Other)
  Sender: FDA-Public Use
  Company Number: GB-BRISTOL-MYERS SQUIBB COMPANY-14677041

PATIENT
  Age: 62 Year
  Sex: Female
  Weight: 62 kg

DRUGS (8)
  1. ORENCIA [Suspect]
     Indication: RHEUMATOID ARTHRITIS
     Dosage: THERAPY DATES: 27FEB09,13MAR09 + 26MAR09
     Route: 042
     Dates: start: 20090227, end: 20090326
  2. BISOPROLOL FUMARATE [Concomitant]
     Indication: ATRIAL FIBRILLATION
     Route: 048
     Dates: start: 20090519
  3. FUROSEMIDE [Concomitant]
     Route: 048
  4. RAMIPRIL [Concomitant]
     Route: 048
  5. CALCICHEW D3 [Concomitant]
     Indication: OSTEOPOROSIS
     Dosage: 2 DF= (2 TABS 1.25G/10MCG)
     Route: 048
  6. AMITRIPTYLINE [Concomitant]
     Indication: PAIN
     Route: 048
  7. WARFARIN [Concomitant]
     Indication: ATRIAL FIBRILLATION
     Route: 048
  8. ACETAMINOPHEN W/ CODEINE [Concomitant]
     Indication: PAIN
     Dosage: 1 DF= 8 TABS
     Route: 048

REACTIONS (2)
  - RENAL FAILURE ACUTE [None]
  - SEPTIC ARTHRITIS STAPHYLOCOCCAL [None]
